FAERS Safety Report 15355641 (Version 1)
Quarter: 2018Q3

REPORT INFORMATION
  Report Type: Report from Study
  Country: DE (occurrence: DE)
  Receive Date: 20180906
  Receipt Date: 20180906
  Transmission Date: 20181010
  Serious: Yes (Other)
  Sender: FDA-Public Use
  Company Number: DE-TORRENT-00009703

PATIENT
  Age: 65 Year
  Sex: Female
  Weight: 77 kg

DRUGS (8)
  1. MARCUMAR [Concomitant]
     Active Substance: PHENPROCOUMON
     Indication: ATRIAL FIBRILLATION
     Dosage: ACCORDING TO INR
     Route: 048
     Dates: start: 2012
  2. METOPROLOL. [Concomitant]
     Active Substance: METOPROLOL
     Indication: CARDIAC FAILURE CONGESTIVE
     Dosage: DAILY DOSE: 47.5 MG MILLIGRAM(S) EVERY DAY
     Route: 048
     Dates: start: 2012
  3. ALLOPURINOL. [Concomitant]
     Active Substance: ALLOPURINOL
     Indication: HYPERURICAEMIA
     Dosage: 150 MG, UNK
     Route: 048
     Dates: start: 201609
  4. METFORMIN HYDROCHLORIDE. [Suspect]
     Active Substance: METFORMIN HYDROCHLORIDE
     Indication: TYPE 2 DIABETES MELLITUS
     Dosage: UNKNOWN
     Route: 048
     Dates: start: 2013, end: 20170411
  5. TORASEMIDE [Concomitant]
     Active Substance: TORSEMIDE
     Indication: CARDIAC FAILURE CONGESTIVE
     Dosage: DAILY DOSE: 5 MG MILLIGRAM(S) EVERY DAY
     Route: 048
     Dates: start: 2012
  6. CELECOXIB. [Suspect]
     Active Substance: CELECOXIB
     Indication: MUSCULOSKELETAL DISORDER
     Dosage: UNKNOWN
     Route: 065
  7. INEGY [Concomitant]
     Active Substance: EZETIMIBE\SIMVASTATIN
     Indication: CARDIAC FAILURE
     Dosage: 50 MG, UNK/ 10/40 MG, UNK
     Route: 048
     Dates: start: 2012
  8. ENTRESTO [Suspect]
     Active Substance: SACUBITRIL\VALSARTAN
     Indication: CARDIAC FAILURE CHRONIC
     Dosage: 1 DF (97/103 MG), BID
     Route: 048
     Dates: start: 20160801, end: 20170406

REACTIONS (1)
  - Nephropathy [Recovering/Resolving]

NARRATIVE: CASE EVENT DATE: 20170403
